FAERS Safety Report 4421154-7 (Version None)
Quarter: 2004Q3

REPORT INFORMATION
  Report Type: 
  Country: None (occurrence: None)
  Receive Date: 20040707
  Receipt Date: 20040517
  Transmission Date: 20050211
  Serious: Yes (Other)
  Sender: FDA-Public Use
  Company Number: 368143

PATIENT

DRUGS (5)
  1. FUZEON [Suspect]
     Dosage: SUBCUTANEOUS
     Route: 058
     Dates: start: 20040515
  2. VIREAD [Concomitant]
  3. ESTREVA (ESTRADIOL) [Concomitant]
  4. REYATAZ [Concomitant]
  5. NORVIR [Concomitant]

REACTIONS (8)
  - ANOREXIA [None]
  - CHILLS [None]
  - COUGH [None]
  - HEADACHE [None]
  - MUSCULOSKELETAL STIFFNESS [None]
  - NAUSEA [None]
  - PAIN [None]
  - PYREXIA [None]
